FAERS Safety Report 4602732-9 (Version None)
Quarter: 2005Q1

REPORT INFORMATION
  Report Type: 
  Country: None (occurrence: None)
  Receive Date: 20050307
  Receipt Date: 20050218
  Transmission Date: 20050727
  Serious: Yes (Death, Other)
  Sender: FDA-Public Use
  Company Number: 2005035956

PATIENT
  Age: 72 Year
  Sex: Male

DRUGS (2)
  1. VORICONAZOLE (VORICONAZOLE) [Suspect]
     Indication: ANTIFUNGAL PROPHYLAXIS
     Dates: start: 20031210
  2. ANTIBIOTICS (ANTIBIOTICS) [Concomitant]

REACTIONS (4)
  - CAECITIS [None]
  - COLON GANGRENE [None]
  - FUNGUS CULTURE POSITIVE [None]
  - ZYGOMYCOSIS [None]
